FAERS Safety Report 4492564-7 (Version None)
Quarter: 2004Q4

REPORT INFORMATION
  Report Type: 
  Country: None (occurrence: None)
  Receive Date: 20041104
  Receipt Date: 20041001
  Transmission Date: 20050328
  Serious: Yes (Hospitalization)
  Sender: FDA-Public Use
  Company Number: US-ABBOTT-04P-163-0276039-00

PATIENT
  Sex: Male
  Weight: 68 kg

DRUGS (2)
  1. CALCIJEX [Suspect]
     Indication: NEOPLASM
     Route: 042
     Dates: start: 20040315, end: 20040927
  2. IRESSA [Concomitant]
     Indication: NEOPLASM
     Route: 048
     Dates: start: 20040322, end: 20041006

REACTIONS (3)
  - ABSCESS [None]
  - CELLULITIS [None]
  - DISEASE PROGRESSION [None]
